FAERS Safety Report 7599276-1 (Version None)
Quarter: 2011Q3

REPORT INFORMATION
  Report Type: 
  Country: None (occurrence: None)
  Receive Date: 20110711
  Receipt Date: 20110605
  Transmission Date: 20111222
  Serious: No
  Sender: FDA-Public Use
  Company Number: US-BAYER-2011-049517

PATIENT
  Age: 9 Year
  Sex: Female
  Weight: 24 kg

DRUGS (1)
  1. NAPROXEN (ALEVE) [Suspect]
     Indication: ANALGESIC THERAPY
     Dosage: 1 DF, ONCE
     Route: 048
     Dates: start: 20110605

REACTIONS (3)
  - NERVOUSNESS [None]
  - FATIGUE [None]
  - ABDOMINAL DISCOMFORT [None]
